FAERS Safety Report 10930986 (Version 1)
Quarter: 2015Q1

REPORT INFORMATION
  Report Type: Spontaneous
  Country: US (occurrence: US)
  Receive Date: 20150319
  Receipt Date: 20150319
  Transmission Date: 20150721
  Serious: No
  Sender: FDA-Public Use
  Company Number: US-009507513-1503USA007672

PATIENT
  Sex: Female

DRUGS (3)
  1. ZESTRIL [Suspect]
     Active Substance: LISINOPRIL
  2. PRINIVIL [Suspect]
     Active Substance: LISINOPRIL
     Route: 048
  3. LISINOPRIL. [Suspect]
     Active Substance: LISINOPRIL
     Route: 048

REACTIONS (4)
  - Eating disorder [Unknown]
  - Blood pressure increased [Unknown]
  - Alopecia [Unknown]
  - Cough [Unknown]
